FAERS Safety Report 17736282 (Version 2)
Quarter: 2020Q2

REPORT INFORMATION
  Report Type: Spontaneous
  Country: JP (occurrence: JP)
  Receive Date: 20200501
  Receipt Date: 20200616
  Transmission Date: 20200714
  Serious: Yes (Hospitalization)
  Sender: FDA-Public Use
  Company Number: JP-ELI_LILLY_AND_COMPANY-JP202004007768

PATIENT
  Age: 83 Year
  Sex: Male
  Weight: 65 kg

DRUGS (4)
  1. DOCETAXEL. [Suspect]
     Active Substance: DOCETAXEL
     Dosage: 90 MG, CYCLICAL
     Route: 041
     Dates: end: 20171114
  2. CYRAMZA [Suspect]
     Active Substance: RAMUCIRUMAB
     Indication: NON-SMALL CELL LUNG CANCER
     Dosage: 600 MG, CYCLICAL
     Route: 041
     Dates: start: 20171003, end: 20171114
  3. DOCETAXEL. [Suspect]
     Active Substance: DOCETAXEL
     Indication: NON-SMALL CELL LUNG CANCER
     Dosage: 80 MG, CYCLICAL
     Route: 041
     Dates: start: 20171003
  4. DECADRON [Concomitant]
     Active Substance: DEXAMETHASONE

REACTIONS (1)
  - Stevens-Johnson syndrome [Recovering/Resolving]

NARRATIVE: CASE EVENT DATE: 20171121
